FAERS Safety Report 7701363-1 (Version None)
Quarter: 2011Q3

REPORT INFORMATION
  Report Type: 
  Country: None (occurrence: None)
  Receive Date: 20110817
  Receipt Date: 20110808
  Transmission Date: 20111222
  Serious: Yes (Life-Threatening, Hospitalization, Other)
  Sender: FDA-Public Use
  Company Number: TPA2011A04671

PATIENT
  Age: 70 Year
  Sex: Male
  Weight: 95.709 kg

DRUGS (4)
  1. GLUCOTROL [Concomitant]
  2. CRESTOR [Concomitant]
  3. ACTOS [Suspect]
     Indication: DIABETES MELLITUS
     Dosage: 30 MG, 1 IN 1 D, ORAL
     Route: 048
     Dates: start: 19900101, end: 20110805
  4. AZOR (ANGIOTENSIN II ANTAGONIST+CALCIUM CHANNEL BLO) [Concomitant]

REACTIONS (1)
  - BLADDER TRANSITIONAL CELL CARCINOMA [None]
